FAERS Safety Report 17652771 (Version 2)
Quarter: 2020Q4

REPORT INFORMATION
  Report Type: Spontaneous
  Country: US (occurrence: US)
  Receive Date: 20200409
  Receipt Date: 20201020
  Transmission Date: 20210113
  Serious: Yes (Death, Other)
  Sender: FDA-Public Use
  Company Number: US-ASTRAZENECA-2020SE47985

PATIENT
  Age: 23098 Day
  Sex: Male

DRUGS (81)
  1. NEXIUM [Suspect]
     Active Substance: ESOMEPRAZOLE MAGNESIUM
     Indication: GASTROOESOPHAGEAL REFLUX DISEASE
     Dosage: DELAYED RELEASE
     Route: 048
     Dates: start: 20160506, end: 20190321
  2. ASPIRIN. [Concomitant]
     Active Substance: ASPIRIN
  3. BENADRYL [Concomitant]
     Active Substance: DIPHENHYDRAMINE HYDROCHLORIDE
  4. CRANBERRY. [Concomitant]
     Active Substance: CRANBERRY
  5. FERROUS SULFATE. [Concomitant]
     Active Substance: FERROUS SULFATE
  6. GOLYTELY [Concomitant]
     Active Substance: POLYETHYLENE GLYCOL 3350\POTASSIUM CHLORIDE\SODIUM BICARBONATE\SODIUM CHLORIDE\SODIUM SULFATE
  7. KEFLEX [Concomitant]
     Active Substance: CEPHALEXIN
  8. NOVOLOG [Concomitant]
     Active Substance: INSULIN ASPART
  9. RELISTOR [Concomitant]
     Active Substance: METHYLNALTREXONE BROMIDE
  10. SENNA [Concomitant]
     Active Substance: SENNA LEAF\SENNOSIDES\SENNOSIDES A AND B
  11. SODIUM BICARBONATE. [Concomitant]
     Active Substance: SODIUM BICARBONATE
  12. SYMBICORT [Concomitant]
     Active Substance: BUDESONIDE\FORMOTEROL FUMARATE DIHYDRATE
  13. TUMS [Concomitant]
     Active Substance: CALCIUM CARBONATE
  14. BISACODYL. [Concomitant]
     Active Substance: BISACODYL
  15. CATAPRES [Concomitant]
     Active Substance: CLONIDINE HYDROCHLORIDE
  16. EPOGEN [Concomitant]
     Active Substance: ERYTHROPOIETIN
  17. FLEET ENEMA [Concomitant]
     Active Substance: SODIUM PHOSPHATE, DIBASIC\SODIUM PHOSPHATE, MONOBASIC
  18. FOLIC ACID. [Concomitant]
     Active Substance: FOLIC ACID
  19. HUMALOG [Concomitant]
     Active Substance: INSULIN LISPRO
  20. LYRICA [Concomitant]
     Active Substance: PREGABALIN
  21. MAGNESIUM CITRATE. [Concomitant]
     Active Substance: MAGNESIUM CITRATE
  22. METOLAZONE. [Concomitant]
     Active Substance: METOLAZONE
  23. METOPROLOL TARTRATE. [Concomitant]
     Active Substance: METOPROLOL TARTRATE
  24. MILK OF MAGNESIA [Concomitant]
     Active Substance: MAGNESIUM HYDROXIDE
  25. RENVELA [Concomitant]
     Active Substance: SEVELAMER CARBONATE
  26. SODIUM CHLORIDE. [Concomitant]
     Active Substance: SODIUM CHLORIDE
  27. NEXIUM [Suspect]
     Active Substance: ESOMEPRAZOLE MAGNESIUM
     Indication: GASTROOESOPHAGEAL REFLUX DISEASE
     Dosage: GENERIC
     Route: 048
     Dates: start: 20170718, end: 20180425
  28. APLISOL [Concomitant]
     Active Substance: TUBERCULIN PURIFIED PROTEIN DERIVATIVE
  29. AZITHROMYCIN ANHYDROUS. [Concomitant]
     Active Substance: AZITHROMYCIN ANHYDROUS
  30. CALCITRIOL. [Concomitant]
     Active Substance: CALCITRIOL
  31. DOCUSATE SODIUM. [Concomitant]
     Active Substance: DOCUSATE SODIUM
  32. DUONEB [Concomitant]
     Active Substance: ALBUTEROL SULFATE\IPRATROPIUM BROMIDE
  33. FLEET MINERAL OIL [Concomitant]
     Active Substance: MINERAL OIL
  34. EPLERENONE. [Concomitant]
     Active Substance: EPLERENONE
  35. NICOTINE. [Concomitant]
     Active Substance: NICOTINE
  36. RISPERDAL [Concomitant]
     Active Substance: RISPERIDONE
  37. PROTONIX [Suspect]
     Active Substance: PANTOPRAZOLE SODIUM
     Indication: GASTROOESOPHAGEAL REFLUX DISEASE
     Dosage: FOR VARIOUS DATES AND YEARS INCLUDING, BUT NOT LIMITED TO AT LEAST 2016 THROUGH 2019.
     Route: 065
  38. PROTONIX [Suspect]
     Active Substance: PANTOPRAZOLE SODIUM
     Indication: GASTROOESOPHAGEAL REFLUX DISEASE
     Dosage: GENERIC- DELAYED RELEASE
     Route: 048
     Dates: start: 20160408, end: 20191023
  39. BACTRIM [Concomitant]
     Active Substance: SULFAMETHOXAZOLE\TRIMETHOPRIM
  40. BUMEX [Concomitant]
     Active Substance: BUMETANIDE
  41. CITALOPRAM HYDROBROMIDE. [Concomitant]
     Active Substance: CITALOPRAM HYDROBROMIDE
  42. CLENPIQ [Concomitant]
     Active Substance: ANHYDROUS CITRIC ACID\MAGNESIUM OXIDE\SODIUM PICOSULFATE
  43. CLOPIDOGREL BISULFATE. [Concomitant]
     Active Substance: CLOPIDOGREL BISULFATE
  44. CYANOCOBALAMIN. [Concomitant]
     Active Substance: CYANOCOBALAMIN
  45. MUPIROCIN. [Concomitant]
     Active Substance: MUPIROCIN
  46. POTASSIUM [Concomitant]
     Active Substance: POTASSIUM
  47. APOAEQURIN [Concomitant]
  48. SODIUM POLYATYRENE SULFONATE [Concomitant]
  49. NEXIUM [Suspect]
     Active Substance: ESOMEPRAZOLE MAGNESIUM
     Indication: GASTROOESOPHAGEAL REFLUX DISEASE
     Dosage: FOR VARIOUS DATES AND YEARS INCLUDING, BUT NOT LIMITED TO AT LEAST 2016 THROUGH 2019.
     Route: 048
  50. ELIQUIS [Concomitant]
     Active Substance: APIXABAN
  51. INSULIN GLARGINE [Concomitant]
     Active Substance: INSULIN GLARGINE
  52. MELATONIN [Concomitant]
     Active Substance: MELATONIN
  53. POTASSIUM CHLORIDE. [Concomitant]
     Active Substance: POTASSIUM CHLORIDE
  54. RENA-VITE [Concomitant]
     Active Substance: ASCORBIC ACID\BIOTIN\CALCIUM PANTOTHENATE\CYANOCOBALAMIN\FOLIC ACID\NIACINAMIDE\PYRIDOXINE HYDROCHLORIDE\RIBOFLAVIN\THIAMINE MONONITRATE
  55. ALBUTEROL SULFATE. [Concomitant]
     Active Substance: ALBUTEROL SULFATE
  56. CHOLECALCIFEROL [Concomitant]
     Active Substance: CHOLECALCIFEROL
  57. DIPHENHYDRAMINE HYDROCHLORIDE. [Concomitant]
     Active Substance: DIPHENHYDRAMINE HYDROCHLORIDE
  58. POLYETHYLENE GLYCOL [Concomitant]
     Active Substance: POLYETHYLENE GLYCOLS
  59. MECLIZINE [Concomitant]
     Active Substance: MECLIZINE HYDROCHLORIDE
  60. MULTIVITAMINS [Concomitant]
     Active Substance: VITAMINS
  61. PNEUMOCOCCAL [Concomitant]
     Active Substance: PNEUMOCOCCAL VACCINE POLYVALENT
  62. PREDNISONE. [Concomitant]
     Active Substance: PREDNISONE
  63. ATIVAN [Concomitant]
     Active Substance: LORAZEPAM
  64. ATORVASTATIN CALCIUM. [Concomitant]
     Active Substance: ATORVASTATIN CALCIUM
  65. FLUCELVAX NOS [Concomitant]
     Active Substance: INFLUENZA A VIRUS A/BRISBANE/10/2010 (H1N1) ANTIGEN (MDCK CELL DERIVED, PROPIOLACTONE INACTIVATED)\INFLUENZA A VIRUS A/VICTORIA/361/2011 IVR-165 (H3N2) ANTIGEN (MDCK CELL DERIVED, PROPIOLACTONE INACTIVATED)\INFLUENZA B VIRUS B/WISCONSIN/1/2010) ANTIGEN (MDCK CELL DERIVED, PROPIOLACTONE INACTIVATED)
  66. FLUCONAZOLE. [Concomitant]
     Active Substance: FLUCONAZOLE
  67. HYDRALAZINE [Concomitant]
     Active Substance: HYDRALAZINE HYDROCHLORIDE
  68. HYDROCODONE-ACETAMINOPHEN [Concomitant]
     Active Substance: ACETAMINOPHEN\HYDROCODONE
  69. MAVYRET [Concomitant]
     Active Substance: GLECAPREVIR\PIBRENTASVIR
  70. MIDODRINE [Concomitant]
     Active Substance: MIDODRINE
  71. ZANTAC [Concomitant]
     Active Substance: RANITIDINE HYDROCHLORIDE
  72. VITAMIN D [Concomitant]
     Active Substance: VITAMIN D NOS
  73. PROTONIX [Suspect]
     Active Substance: PANTOPRAZOLE SODIUM
     Indication: GASTROOESOPHAGEAL REFLUX DISEASE
     Route: 048
     Dates: start: 20190329, end: 20190330
  74. ACETAMINOPHEN. [Concomitant]
     Active Substance: ACETAMINOPHEN
  75. AFLURIA NOS [Concomitant]
     Active Substance: INFLUENZA VIRUS VACCINE TRIVALENT TYPE A+B AFLURIA
  76. AMLODIPINE BESYLATE. [Concomitant]
     Active Substance: AMLODIPINE BESYLATE
  77. DSS [Concomitant]
     Active Substance: DEXTRAN SULFATE SODIUM
  78. GABAPENTIN. [Concomitant]
     Active Substance: GABAPENTIN
  79. GUAIFENESIN. [Concomitant]
     Active Substance: GUAIFENESIN
  80. TUBERCULIN NOS [Concomitant]
     Active Substance: TUBERCULIN PURIFIED PROTEIN DERIVATIVE
  81. ZOFRAN [Concomitant]
     Active Substance: ONDANSETRON HYDROCHLORIDE

REACTIONS (5)
  - Renal failure [Unknown]
  - Chronic kidney disease [Unknown]
  - Nephrogenic anaemia [Unknown]
  - End stage renal disease [Fatal]
  - Rebound acid hypersecretion [Unknown]

NARRATIVE: CASE EVENT DATE: 20191022
